FAERS Safety Report 9771099 (Version 2)
Quarter: 2014Q1

REPORT INFORMATION
  Report Type: Spontaneous
  Country: AR (occurrence: AR)
  Receive Date: 20131218
  Receipt Date: 20140224
  Transmission Date: 20141002
  Serious: Yes (Other)
  Sender: FDA-Public Use
  Company Number: AR-PFIZER INC-2013360512

PATIENT
  Age: 26 Year
  Sex: Female

DRUGS (1)
  1. SOMAVERT [Suspect]
     Indication: ACROMEGALY
     Dosage: 10 MG, 4X/WEEK
     Route: 042
     Dates: start: 20130927, end: 201312

REACTIONS (2)
  - Neoplasm [Not Recovered/Not Resolved]
  - Incorrect route of drug administration [Unknown]
